FAERS Safety Report 5586510-2 (Version None)
Quarter: 2008Q1

REPORT INFORMATION
  Report Type: 
  Country: None (occurrence: None)
  Receive Date: 20080110
  Receipt Date: 20080104
  Transmission Date: 20080703
  Serious: Yes (Death)
  Sender: FDA-Public Use
  Company Number: US-ROCHE-539553

PATIENT
  Age: 73 Year
  Sex: Male

DRUGS (1)
  1. CELLCEPT [Suspect]
     Indication: DRUG USE FOR UNKNOWN INDICATION
     Route: 065
     Dates: start: 20060227

REACTIONS (1)
  - DEATH [None]
